FAERS Safety Report 24029467 (Version 5)
Quarter: 2025Q2

REPORT INFORMATION
  Report Type: Report from Study
  Country: US (occurrence: US)
  Receive Date: 20240628
  Receipt Date: 20250610
  Transmission Date: 20250717
  Serious: Yes (Other)
  Sender: NOVARTIS
  Company Number: US-002147023-NVSC2024US131075

PATIENT
  Sex: Male

DRUGS (1)
  1. KESIMPTA [Suspect]
     Active Substance: OFATUMUMAB
     Indication: Multiple sclerosis
     Route: 065

REACTIONS (16)
  - Neuropathy peripheral [Unknown]
  - Balance disorder [Unknown]
  - Joint swelling [Unknown]
  - Gait disturbance [Unknown]
  - Condition aggravated [Unknown]
  - Memory impairment [Unknown]
  - Fatigue [Unknown]
  - Dyspnoea exertional [Unknown]
  - Cardiac murmur [Unknown]
  - Extrasystoles [Unknown]
  - COVID-19 [Unknown]
  - Drug delivery system issue [Unknown]
  - Product storage error [Unknown]
  - Cognitive disorder [Unknown]
  - Visual impairment [Unknown]
  - Drug ineffective [Unknown]
